FAERS Safety Report 11690284 (Version 1)
Quarter: 2015Q4

REPORT INFORMATION
  Report Type: Spontaneous
  Country: NL (occurrence: NL)
  Receive Date: 20151102
  Receipt Date: 20151102
  Transmission Date: 20160304
  Serious: Yes (Disabling, Other)
  Sender: FDA-Public Use
  Company Number: NL-MYLANLABS-2015M1036167

PATIENT

DRUGS (2)
  1. PANTOPRAZOLE [Suspect]
     Active Substance: PANTOPRAZOLE SODIUM
     Dosage: 40 MG, QD
     Route: 065
  2. PANTOPRAZOLE [Suspect]
     Active Substance: PANTOPRAZOLE SODIUM
     Indication: DIAPHRAGMATIC HERNIA
     Dosage: 40 MG, THREE TIMES A WEEK
     Route: 065

REACTIONS (4)
  - Myalgia [Recovered/Resolved]
  - Activities of daily living impaired [Recovered/Resolved]
  - Rheumatic disorder [Recovered/Resolved]
  - Vitamin B12 decreased [Recovered/Resolved]
